FAERS Safety Report 22239169 (Version 2)
Quarter: 2023Q2

REPORT INFORMATION
  Report Type: Report from Study
  Country: US (occurrence: US)
  Receive Date: 20230421
  Receipt Date: 20230509
  Transmission Date: 20230722
  Serious: Yes (Hospitalization, Other)
  Sender: FDA-Public Use
  Company Number: US-MYLANLABS-2023M1000129

PATIENT
  Age: 62 Year
  Sex: Female
  Weight: 111.57 kg

DRUGS (10)
  1. SILDENAFIL [Suspect]
     Active Substance: SILDENAFIL
     Indication: Pulmonary arterial hypertension
     Dosage: 60 MILLIGRAM, TID
     Route: 065
     Dates: start: 20220624
  2. SILDENAFIL [Suspect]
     Active Substance: SILDENAFIL
     Dosage: 60 MILLIGRAM, TID
     Route: 065
     Dates: start: 20220628
  3. SILDENAFIL [Suspect]
     Active Substance: SILDENAFIL
     Dosage: 20 MILLIGRAM, TID
     Route: 065
     Dates: start: 202206
  4. TYVASO [Suspect]
     Active Substance: TREPROSTINIL
     Indication: Pulmonary arterial hypertension
     Dosage: 32 MICROGRAM, QID
     Route: 065
     Dates: start: 202211, end: 20221218
  5. TYVASO [Suspect]
     Active Substance: TREPROSTINIL
     Dosage: 16 MICROGRAM, QID
     Route: 065
     Dates: start: 202211, end: 20221218
  6. TYVASO [Suspect]
     Active Substance: TREPROSTINIL
     Dosage: 16 MICROGRAM, QID
     Route: 065
     Dates: start: 202211
  7. TYVASO [Suspect]
     Active Substance: TREPROSTINIL
     Dosage: 16 MICROGRAM, QID
     Route: 065
     Dates: start: 202211, end: 20221218
  8. TYVASO [Suspect]
     Active Substance: TREPROSTINIL
     Dosage: 64 MILLIGRAM, QID
     Route: 065
     Dates: start: 202211
  9. AMBRISENTAN [Suspect]
     Active Substance: AMBRISENTAN
     Indication: Pulmonary arterial hypertension
     Dosage: 5 MILLIGRAM, QD
     Route: 065
     Dates: start: 20221120
  10. AMBRISENTAN [Concomitant]
     Active Substance: AMBRISENTAN
     Indication: Pulmonary arterial hypertension
     Dosage: 5 MILLIGRAM, QD
     Route: 065
     Dates: start: 20221121

REACTIONS (9)
  - Ammonia abnormal [Not Recovered/Not Resolved]
  - Pneumonia [Recovered/Resolved]
  - Gastrointestinal disorder [Recovered/Resolved]
  - Pleural effusion [Recovered/Resolved]
  - Liver disorder [Not Recovered/Not Resolved]
  - Dyspnoea [Recovered/Resolved]
  - Weight increased [Recovered/Resolved]
  - Fluid retention [Recovered/Resolved]
  - Drug ineffective [Not Recovered/Not Resolved]

NARRATIVE: CASE EVENT DATE: 20221201
